FAERS Safety Report 9230464 (Version 1)
Quarter: 2013Q2

REPORT INFORMATION
  Report Type: Spontaneous
  Country: FR (occurrence: FR)
  Receive Date: 20130415
  Receipt Date: 20130415
  Transmission Date: 20140414
  Serious: Yes (Other)
  Sender: FDA-Public Use
  Company Number: FR-EISAI INC-E7389-03740-SPO-FR

PATIENT
  Age: 45 Year
  Sex: Female

DRUGS (1)
  1. HALAVEN [Suspect]
     Indication: PRODUCT USED FOR UNKNOWN INDICATION
     Dosage: UNKNOWN
     Route: 041

REACTIONS (2)
  - Presenile dementia [Unknown]
  - Neuropathy peripheral [Unknown]
